FAERS Safety Report 8495325-7 (Version None)
Quarter: 2012Q3

REPORT INFORMATION
  Report Type: 
  Country: None (occurrence: None)
  Receive Date: 20120702
  Receipt Date: 20120702
  Transmission Date: 20120928
  Serious: Yes (Hospitalization)
  Sender: FDA-Public Use
  Company Number: None

PATIENT
  Age: 84 Year
  Sex: Female

DRUGS (2)
  1. ALTEPLASE, 6.5 MG, IVP, GENENTECH [Suspect]
     Indication: CEREBROVASCULAR ACCIDENT
     Dates: start: 20120618, end: 20120618
  2. ALTEPLASE, 58.9 MG, GENENTECH [Suspect]
     Dosage: MG

REACTIONS (3)
  - ANGIOEDEMA [None]
  - INFUSION RELATED REACTION [None]
  - SWOLLEN TONGUE [None]
